FAERS Safety Report 9394598 (Version 1)
Quarter: 2013Q3

REPORT INFORMATION
  Report Type: Spontaneous
  Country: US (occurrence: None)
  Receive Date: 20130709
  Receipt Date: 20130709
  Transmission Date: 20140515
  Serious: No
  Sender: FDA-Public Use
  Company Number: None

PATIENT
  Age: 71 Year
  Sex: Female

DRUGS (15)
  1. CYMBALTA (DULOXETINE HYDROCHLORIDE) [Suspect]
     Indication: MUSCULOSKELETAL PAIN
     Dosage: 2 PILLS(30 MG) ONCE DAILY MOUTH IN THE MORNING
     Route: 048
     Dates: start: 201210, end: 20130506
  2. AMODIPINE BESYLATE [Concomitant]
  3. ASPIRIN [Concomitant]
  4. ATENOLOL [Concomitant]
  5. CHOLECALCIFEROL [Concomitant]
  6. CLOPIDOGREL BISULFATE [Concomitant]
  7. DULOXETINE HCI [Concomitant]
  8. FUROSEMIDE [Concomitant]
  9. LANSOPRAZOLE [Concomitant]
  10. MUTIPLE VITAMIN [Concomitant]
  11. NITROGLYCERIN [Concomitant]
  12. OMEGA-3 FATTY ACIDS [Concomitant]
  13. POTASSIUM CHLORIDE [Concomitant]
  14. PRAVASTATIN SODIUM [Concomitant]
  15. TRAMADOL HCI [Concomitant]

REACTIONS (4)
  - Alopecia [None]
  - Fear [None]
  - Abnormal dreams [None]
  - Emotional poverty [None]
